FAERS Safety Report 4900934-5 (Version None)
Quarter: 2006Q1

REPORT INFORMATION
  Report Type: 
  Country: None (occurrence: None)
  Receive Date: 20060113
  Receipt Date: 20050915
  Transmission Date: 20060701
  Serious: No
  Sender: FDA-Public Use
  Company Number: 2005SP000956

PATIENT
  Age: 48 Year
  Sex: Male
  Weight: 95.2554 kg

DRUGS (4)
  1. LUNESTA [Suspect]
     Indication: SLEEP DISORDER
     Dosage: 3 MG, HS, ORAL
     Route: 048
     Dates: start: 20050507, end: 20050509
  2. OXYCONTIN [Concomitant]
  3. FLEXERIL [Concomitant]
  4. BACLOFEN [Concomitant]

REACTIONS (2)
  - DYSGEUSIA [None]
  - DYSPHONIA [None]
